FAERS Safety Report 17259269 (Version 1)
Quarter: 2020Q1

REPORT INFORMATION
  Report Type: Spontaneous
  Country: US (occurrence: US)
  Receive Date: 20200110
  Receipt Date: 20200110
  Transmission Date: 20200409
  Serious: Yes (Death)
  Sender: FDA-Public Use
  Company Number: US-OTSUKA-2020_000480

PATIENT

DRUGS (4)
  1. DACOGEN [Suspect]
     Active Substance: DECITABINE
     Indication: MYELODYSPLASTIC SYNDROME
  2. DACOGEN [Suspect]
     Active Substance: DECITABINE
     Indication: ALLOGENIC STEM CELL TRANSPLANTATION
     Dosage: 20 MG/M2, UNK
     Route: 065
  3. DACOGEN [Suspect]
     Active Substance: DECITABINE
     Indication: ACUTE MYELOID LEUKAEMIA
  4. DACOGEN [Suspect]
     Active Substance: DECITABINE
     Indication: BONE MARROW CONDITIONING REGIMEN

REACTIONS (1)
  - Pneumonia [Fatal]
